FAERS Safety Report 13434447 (Version 1)
Quarter: 2017Q2

REPORT INFORMATION
  Report Type: Spontaneous
  Country: AU (occurrence: AU)
  Receive Date: 20170412
  Receipt Date: 20170412
  Transmission Date: 20170830
  Serious: Yes (Other)
  Sender: FDA-Public Use
  Company Number: AU-APOTEX-2017AP010462

PATIENT
  Sex: Female

DRUGS (4)
  1. CHEMMART ALPRAZOLAM [Suspect]
     Active Substance: ALPRAZOLAM
     Indication: DEPRESSION
     Dosage: 5 TO 10 MG, DAILY
     Route: 065
  2. TRANYLCYPROMINE [Suspect]
     Active Substance: TRANYLCYPROMINE
     Indication: DEPRESSION
     Dosage: BETWEEN 100 MG AND 130 MG, DAILY
     Route: 065
  3. PIMOZIDE. [Suspect]
     Active Substance: PIMOZIDE
     Indication: PRODUCT USED FOR UNKNOWN INDICATION
     Dosage: 1 TO 2 MG, DAILY
     Route: 065
  4. DIAZEPAM. [Suspect]
     Active Substance: DIAZEPAM
     Indication: DEPRESSION
     Dosage: 5 TO 10 MG, DAILY
     Route: 065

REACTIONS (4)
  - Subchorionic haemorrhage [Unknown]
  - Drug interaction [Unknown]
  - Placental infarction [Unknown]
  - Exposure during pregnancy [Unknown]
